FAERS Safety Report 13600999 (Version 2)
Quarter: 2017Q2

REPORT INFORMATION
  Report Type: Spontaneous
  Country: US (occurrence: US)
  Receive Date: 20170601
  Receipt Date: 20170629
  Transmission Date: 20170830
  Serious: No
  Sender: FDA-Public Use
  Company Number: US-ASTRAZENECA-2017SE58041

PATIENT
  Age: 785 Month
  Sex: Male

DRUGS (1)
  1. TUDORZA PRESSAIR [Suspect]
     Active Substance: ACLIDINIUM BROMIDE
     Dosage: 400 MCG TAKING 1 PUFF TWICE A DAY
     Route: 055

REACTIONS (4)
  - Intentional product use issue [Unknown]
  - Device malfunction [Unknown]
  - Device failure [Unknown]
  - Visual impairment [Unknown]

NARRATIVE: CASE EVENT DATE: 201705
